FAERS Safety Report 14677518 (Version 6)
Quarter: 2018Q3

REPORT INFORMATION
  Report Type: Report from Study
  Country: PL (occurrence: PL)
  Receive Date: 20180325
  Receipt Date: 20180810
  Transmission Date: 20181010
  Serious: Yes (Death, Hospitalization, Other)
  Sender: FDA-Public Use
  Company Number: PL-EXELIXIS-XL18418012881

PATIENT
  Age: 57 Year
  Sex: Male

DRUGS (16)
  1. ALFADIOL [Concomitant]
     Active Substance: ALFACALCIDOL
  2. LYRICA [Concomitant]
     Active Substance: PREGABALIN
  3. COGITON [Concomitant]
  4. BLINDED XL184 [Suspect]
     Active Substance: CABOZANTINIB
     Indication: MEDULLARY THYROID CANCER
     Dosage: UNK
     Route: 048
     Dates: start: 20170829
  5. RELANIUM [Concomitant]
     Active Substance: DIAZEPAM
  6. BLINDED XL184 [Suspect]
     Active Substance: CABOZANTINIB
     Dosage: UNK
     Route: 048
     Dates: end: 20180213
  7. OXYCODON [Concomitant]
     Active Substance: OXYCODONE
  8. BLINDED XL184 [Suspect]
     Active Substance: CABOZANTINIB
     Indication: MEDULLARY THYROID CANCER
     Dosage: UNK
     Route: 048
     Dates: start: 20170829
  9. VETIRA [Concomitant]
  10. BLINDED XL184 [Suspect]
     Active Substance: CABOZANTINIB
     Dosage: UNK
     Route: 048
     Dates: end: 20180213
  11. CALPEROS [Concomitant]
     Active Substance: CALCIUM CARBONATE
  12. ROTICOX [Concomitant]
  13. BIOMENTIN [Concomitant]
  14. DEXAMETHASON [Concomitant]
     Active Substance: DEXAMETHASONE
  15. EUTHYROX [Concomitant]
     Active Substance: LEVOTHYROXINE SODIUM
  16. DULSEVIA [Concomitant]

REACTIONS (2)
  - Pyrexia [Fatal]
  - Epilepsy [Fatal]

NARRATIVE: CASE EVENT DATE: 20180302
